FAERS Safety Report 14204799 (Version 1)
Quarter: 2017Q4

REPORT INFORMATION
  Report Type: Spontaneous
  Country: US (occurrence: US)
  Receive Date: 20171118
  Receipt Date: 20171118
  Transmission Date: 20180321
  Serious: Yes (Disabling)
  Sender: FDA-Public Use
  Company Number: None

PATIENT
  Age: 46 Year
  Sex: Female
  Weight: 97.2 kg

DRUGS (16)
  1. NATURE THROYD [Concomitant]
  2. MARSHMALLOW ROOT [Concomitant]
  3. METHYL B 12 [Concomitant]
  4. MELTHYLFOLATE [Concomitant]
  5. VENTOLIN HFA [Suspect]
     Active Substance: ALBUTEROL SULFATE
     Indication: DYSPNOEA
     Dosage: ?          OTHER STRENGTH:MCG;QUANTITY:2 PUFF(S);?
     Route: 055
     Dates: start: 20171113
  6. VITAMIN D3 [Concomitant]
     Active Substance: CHOLECALCIFEROL
  7. LICORICE ROOT [Concomitant]
     Active Substance: LICORICE
  8. WILD CHERRY BARK [Concomitant]
     Active Substance: WILD CHERRY BARK
  9. IMITREX [Concomitant]
     Active Substance: SUMATRIPTAN SUCCINATE
  10. NAPROXEN. [Concomitant]
     Active Substance: NAPROXEN
  11. VENTOLIN HFA [Suspect]
     Active Substance: ALBUTEROL SULFATE
     Indication: EXPOSURE TO TOXIC AGENT
     Dosage: ?          OTHER STRENGTH:MCG;QUANTITY:2 PUFF(S);?
     Route: 055
     Dates: start: 20171113
  12. TORADOL [Concomitant]
     Active Substance: KETOROLAC TROMETHAMINE
  13. MAGNESIUM GLYCINATE [Concomitant]
     Active Substance: MAGNESIUM GLYCINATE
  14. OMEGA 3 FISH OILS [Concomitant]
     Active Substance: OMEGA-3 FATTY ACIDS
  15. CITICOLINE [Concomitant]
     Active Substance: CITICOLINE
  16. MULLEIN LEAF EXTRACT [Concomitant]

REACTIONS (1)
  - Urinary incontinence [None]

NARRATIVE: CASE EVENT DATE: 20171114
